FAERS Safety Report 8093669-4 (Version None)
Quarter: 2012Q1

REPORT INFORMATION
  Report Type: 
  Country: None (occurrence: None)
  Receive Date: 20120129
  Receipt Date: 20111025
  Transmission Date: 20120608
  Serious: No
  Sender: FDA-Public Use
  Company Number: US-ABBOTT-11P-163-0868429-00

PATIENT
  Age: 54 Year
  Sex: Female

DRUGS (3)
  1. HUMIRA [Suspect]
  2. HUMIRA [Suspect]
     Dosage: (80 MG, SECOND LOADING DOSE)
  3. HUMIRA [Suspect]
     Indication: CROHN'S DISEASE
     Dosage: (160 MG, LOADING DOSE)
     Dates: start: 20110829, end: 20110829

REACTIONS (5)
  - CONTUSION [None]
  - OROPHARYNGEAL PAIN [None]
  - HEADACHE [None]
  - FATIGUE [None]
  - COUGH [None]
